FAERS Safety Report 8474477-9 (Version None)
Quarter: 2012Q2

REPORT INFORMATION
  Report Type: 
  Country: None (occurrence: None)
  Receive Date: 20120628
  Receipt Date: 20120625
  Transmission Date: 20120825
  Serious: Yes (Hospitalization)
  Sender: FDA-Public Use
  Company Number: PHHY2010US07212

PATIENT
  Sex: Female
  Weight: 28 kg

DRUGS (13)
  1. LEVOTHYROXINE [Concomitant]
     Indication: HYPOTHYROIDISM
     Dosage: 1 DF, DAILY
     Route: 048
  2. PRILOSEC [Concomitant]
     Dosage: 10 MG, DAILY
  3. EXJADE [Suspect]
     Indication: IRON OVERLOAD
     Dosage: 625 MG
     Route: 048
  4. VITAMIN D [Concomitant]
     Dosage: 1000 IU, DAILY
  5. IBUPROFEN [Concomitant]
     Indication: PAIN
     Dosage: 250 MG, PRN
  6. EXJADE [Suspect]
     Dosage: 500 MG, DAILY
     Route: 048
  7. OXYCODONE HCL [Concomitant]
     Indication: PAIN
     Route: 048
  8. EXJADE [Suspect]
     Dosage: 27 MG/KG, DAILY (750 MG, DAILY)
  9. FOLIC ACID [Concomitant]
     Indication: SICKLE CELL ANAEMIA
     Dosage: 1 MG, DAILY
     Route: 048
  10. CARVEDILOL [Concomitant]
     Indication: CARDIOMYOPATHY
     Dosage: 6.25 MG, DAILY
     Route: 048
  11. MIRALAX [Concomitant]
     Indication: CONSTIPATION
     Dosage: 8.5 MG, BID
     Route: 048
  12. PERCOCET [Concomitant]
     Indication: PAIN
     Route: 048
  13. CARAFATE [Concomitant]
     Dosage: 1 G, DAILY
     Route: 048

REACTIONS (7)
  - NAUSEA [None]
  - CHEST PAIN [None]
  - SICKLE CELL ANAEMIA WITH CRISIS [None]
  - ABDOMINAL PAIN [None]
  - PAIN [None]
  - CONSTIPATION [None]
  - PAIN IN EXTREMITY [None]
